FAERS Safety Report 6372054-7 (Version None)
Quarter: 2009Q3

REPORT INFORMATION
  Report Type: 
  Country: None (occurrence: None)
  Receive Date: 20090917
  Receipt Date: 20090914
  Transmission Date: 20100115
  Serious: Yes (Death)
  Sender: FDA-Public Use
  Company Number: 20090019USST

PATIENT
  Sex: Female

DRUGS (1)
  1. LEVOCARNITINE [Suspect]
     Indication: CARNITINE DEFICIENCY
     Dosage: }400 MG, PO
     Route: 048

REACTIONS (2)
  - MALABSORPTION [None]
  - THERAPEUTIC RESPONSE DECREASED [None]
